FAERS Safety Report 24659867 (Version 1)
Quarter: 2024Q4

REPORT INFORMATION
  Report Type: Spontaneous
  Country: CH (occurrence: CH)
  Receive Date: 20241125
  Receipt Date: 20241125
  Transmission Date: 20250114
  Serious: Yes (Hospitalization, Other)
  Sender: MERCK
  Company Number: None

PATIENT
  Age: 34 Year
  Sex: Male

DRUGS (5)
  1. PREVYMIS [Suspect]
     Active Substance: LETERMOVIR
     Indication: Cytomegalovirus infection
     Dosage: 480 MILLIGRAM
     Route: 048
     Dates: start: 20240514
  2. SULFAMETHOXAZOLE\TRIMETHOPRIM [Suspect]
     Active Substance: SULFAMETHOXAZOLE\TRIMETHOPRIM
     Dosage: 1 DOSAGE FORM
     Route: 048
     Dates: start: 202309, end: 20240820
  3. SULFAMETHOXAZOLE\TRIMETHOPRIM [Suspect]
     Active Substance: SULFAMETHOXAZOLE\TRIMETHOPRIM
     Dosage: PAUSED FROM 20AUG2024 UNTIL 28AUG2024 OR UNTIL 10SEP2024 (DIFFERING INFORMATION)
     Route: 048
     Dates: start: 20240828, end: 20240910
  4. SULFAMETHOXAZOLE\TRIMETHOPRIM [Suspect]
     Active Substance: SULFAMETHOXAZOLE\TRIMETHOPRIM
     Dosage: CERTAINLY RESTARTED FROM 11SEP2024 THEN, ACCORDING TO THE PATIENT INFORMATION, AFTER DISCHARGE ON 16
     Route: 048
     Dates: start: 20240911, end: 20240916
  5. PROGRAF [Suspect]
     Active Substance: TACROLIMUS
     Dosage: DOSAGE VARIABLE AFTER LEVEL CONTROL
     Route: 048
     Dates: start: 202309

REACTIONS (6)
  - Neutropenia [Recovered/Resolved]
  - Neutropenia [Recovered/Resolved]
  - Neutropenia [Recovered/Resolved]
  - Neutropenia [Recovered/Resolved]
  - Neutropenia [Recovered/Resolved]
  - Neutropenia [Recovered/Resolved]

NARRATIVE: CASE EVENT DATE: 20240404
